FAERS Safety Report 8325716 (Version 6)
Quarter: 2012Q4

REPORT INFORMATION
  Report Type: 
  Country: US (occurrence: US)
  Receive Date: 20120106
  Receipt Date: 20121019
  Transmission Date: 20130627
  Serious: Yes (Hospitalization, Disabling, Other)
  Sender: FDA-Public Use
  Company Number: US-009507513-1201USA00229

PATIENT

DRUGS (7)
  1. FOSAMAX [Suspect]
     Indication: OSTEOARTHRITIS
     Dosage: 70 mg, QW
     Route: 048
     Dates: start: 1996, end: 20080611
  2. FOSAMAX [Suspect]
     Indication: OSTEOPOROSIS
     Dosage: 10 mg, qd
     Route: 048
  3. ALENDRONATE SODIUM [Suspect]
     Indication: OSTEOARTHRITIS
     Dosage: 70 mg, UNK
     Route: 048
     Dates: start: 20080611, end: 20100723
  4. ALENDRONATE SODIUM [Suspect]
     Indication: OSTEOPENIA
  5. PREMPRO [Concomitant]
     Indication: OSTEOPOROSIS
  6. SYNTHROID [Concomitant]
     Indication: HYPOTHYROIDISM
     Dosage: 100 Microgram, qd
  7. FORTEO [Concomitant]
     Indication: OSTEOPOROSIS
     Dosage: 20 Microgram, qd
     Route: 048

REACTIONS (73)
  - Haemorrhagic anaemia [Unknown]
  - Rotator cuff syndrome [Unknown]
  - Renal failure [Unknown]
  - Bone disorder [Unknown]
  - Osteoarthritis [Unknown]
  - Umbilical hernia [Unknown]
  - Spinal fusion surgery [Unknown]
  - Femur fracture [Recovered/Resolved]
  - Back pain [Not Recovered/Not Resolved]
  - Gait disturbance [Unknown]
  - Wound haematoma [Unknown]
  - Adverse event [Unknown]
  - Carpal tunnel syndrome [Unknown]
  - Hypertension [Unknown]
  - Cataract [Unknown]
  - Cataract [Unknown]
  - Large intestine polyp [Unknown]
  - Oesophageal hypomotility [Unknown]
  - Gastritis erosive [Unknown]
  - Helicobacter infection [Unknown]
  - Cough [Unknown]
  - Respiratory tract congestion [Unknown]
  - Increased upper airway secretion [Unknown]
  - Chest discomfort [Unknown]
  - Increased upper airway secretion [Unknown]
  - Dyspnoea [Unknown]
  - Hiatus hernia [Unknown]
  - Pollakiuria [Unknown]
  - Dysuria [Unknown]
  - Gout [Unknown]
  - Ventricular extrasystoles [Unknown]
  - Neuropathy peripheral [Unknown]
  - Bundle branch block right [Unknown]
  - QRS axis abnormal [Unknown]
  - Pulmonary hypertension [Unknown]
  - Anaemia [Unknown]
  - Wound dehiscence [Unknown]
  - Laceration [Unknown]
  - Dermatitis allergic [Not Recovered/Not Resolved]
  - Arthropod bite [Unknown]
  - Arteriosclerosis coronary artery [Unknown]
  - Joint range of motion decreased [Unknown]
  - Onychomycosis [Unknown]
  - Procedural site reaction [Recovered/Resolved]
  - Selective IgG subclass deficiency [Not Recovered/Not Resolved]
  - Chronic sinusitis [Not Recovered/Not Resolved]
  - Chronic sinusitis [Unknown]
  - Sinus polyp [Unknown]
  - Scoliosis [Unknown]
  - Rotator cuff syndrome [Unknown]
  - Radicular syndrome [Unknown]
  - Colon adenoma [Unknown]
  - Irritable bowel syndrome [Unknown]
  - Blood pressure increased [Unknown]
  - Hyposmia [Unknown]
  - Dysphagia [Unknown]
  - Gastrooesophageal reflux disease [Unknown]
  - Gastric ulcer [Unknown]
  - Arthralgia [Unknown]
  - Headache [Unknown]
  - Off label use [Unknown]
  - Constipation [Unknown]
  - Urticaria [Unknown]
  - Drug ineffective [Unknown]
  - Irritable bowel syndrome [Unknown]
  - Stress fracture [Unknown]
  - Fall [Unknown]
  - Intramedullary rod insertion [Unknown]
  - Sleep apnoea syndrome [Unknown]
  - Radius fracture [Unknown]
  - Body height decreased [Unknown]
  - Diverticulum [Unknown]
  - Atrial fibrillation [Unknown]
